FAERS Safety Report 23046416 (Version 2)
Quarter: 2023Q4

REPORT INFORMATION
  Report Type: Spontaneous
  Country: US (occurrence: US)
  Receive Date: 20231009
  Receipt Date: 20231207
  Transmission Date: 20240110
  Serious: Yes (Hospitalization)
  Sender: FDA-Public Use
  Company Number: US-PFIZER INC-202300314506

PATIENT
  Age: 23 Year
  Sex: Male
  Weight: 62.6 kg

DRUGS (1)
  1. OXBRYTA [Suspect]
     Active Substance: VOXELOTOR
     Indication: Sickle cell anaemia
     Dosage: 1500 MG, 1X/DAY (500, IN TOTAL 1500 (THREE TABLETS ONE TIME A DAY)
     Route: 048
     Dates: start: 202307, end: 2023

REACTIONS (2)
  - Illness [Unknown]
  - Haemoglobin increased [Unknown]

NARRATIVE: CASE EVENT DATE: 20230101
